FAERS Safety Report 5087702-1 (Version None)
Quarter: 2006Q3

REPORT INFORMATION
  Report Type: 
  Country: None (occurrence: None)
  Receive Date: 20060731
  Receipt Date: 20060504
  Transmission Date: 20061208
  Serious: Yes (Other)
  Sender: FDA-Public Use
  Company Number: 200612298BWH

PATIENT
  Age: 58 Year
  Sex: Male

DRUGS (2)
  1. AVELOX [Suspect]
     Indication: CONVULSION
     Dosage: INTRAVENOUS
     Route: 042
     Dates: start: 20060406
  2. AVELOX [Suspect]
     Indication: WHITE BLOOD CELL COUNT INCREASED
     Dosage: INTRAVENOUS
     Route: 042
     Dates: start: 20060406

REACTIONS (1)
  - CONVULSION [None]
